FAERS Safety Report 7639408-X (Version None)
Quarter: 2011Q3

REPORT INFORMATION
  Report Type: 
  Country: None (occurrence: None)
  Receive Date: 20110727
  Receipt Date: 20110722
  Transmission Date: 20111222
  Serious: Yes (Hospitalization, Disabling)
  Sender: FDA-Public Use
  Company Number: US-GLAXOSMITHKLINE-A0653201A

PATIENT
  Age: 57 Year
  Sex: Male

DRUGS (11)
  1. AVANDIA [Suspect]
     Indication: DIABETES MELLITUS
     Route: 048
     Dates: start: 20040401, end: 20060701
  2. LEXAPRO [Concomitant]
  3. LYRICA [Concomitant]
  4. STARLIX [Concomitant]
  5. AMBIEN [Concomitant]
  6. AVANDAMET [Suspect]
     Indication: TYPE 2 DIABETES MELLITUS
     Route: 048
     Dates: start: 20040201, end: 20070501
  7. PLAVIX [Concomitant]
  8. SYNTHROID [Concomitant]
  9. METOPROLOL TARTRATE [Concomitant]
  10. CRESTOR [Concomitant]
  11. WELLBUTRIN [Concomitant]

REACTIONS (3)
  - MYOCARDIAL INFARCTION [None]
  - JOINT SWELLING [None]
  - CORONARY ARTERY DISEASE [None]
